FAERS Safety Report 14162168 (Version 1)
Quarter: 2017Q4

REPORT INFORMATION
  Report Type: Spontaneous
  Country: US (occurrence: US)
  Receive Date: 20171106
  Receipt Date: 20171106
  Transmission Date: 20180321
  Serious: No
  Sender: FDA-Public Use
  Company Number: US-AMGEN-USASP2017148322

PATIENT
  Age: 67 Year
  Sex: Female

DRUGS (3)
  1. ARANESP [Suspect]
     Active Substance: DARBEPOETIN ALFA
     Dosage: 300 MUG, Q2WK
     Route: 065
  2. ARANESP [Suspect]
     Active Substance: DARBEPOETIN ALFA
     Dosage: 200 UNK, UNK
     Route: 065
  3. ARANESP [Suspect]
     Active Substance: DARBEPOETIN ALFA
     Indication: RED BLOOD CELL COUNT DECREASED
     Dosage: 100 UNK, UNK
     Route: 065
     Dates: start: 2016

REACTIONS (6)
  - Haemoglobin C [Unknown]
  - Haemoglobin abnormal [Unknown]
  - Drug ineffective [Unknown]
  - Renal disorder [Unknown]
  - Injection site pain [Unknown]
  - Asthenia [Unknown]
